FAERS Safety Report 9288614 (Version 1)
Quarter: 2013Q2

REPORT INFORMATION
  Report Type: Spontaneous
  Country: US (occurrence: US)
  Receive Date: 20130514
  Receipt Date: 20130514
  Transmission Date: 20140414
  Serious: Yes (Other)
  Sender: FDA-Public Use
  Company Number: US-JNJFOC-20130503471

PATIENT
  Age: 14 Year
  Sex: Male
  Weight: 58.97 kg

DRUGS (3)
  1. ZYRTEC-D [Suspect]
     Indication: NASAL CONGESTION
     Route: 048
     Dates: start: 20130504, end: 20130504
  2. ZYRTEC-D [Suspect]
     Indication: THROAT IRRITATION
     Route: 048
     Dates: start: 20130504, end: 20130504
  3. ZYRTEC-D [Suspect]
     Indication: NASOPHARYNGITIS
     Route: 048
     Dates: start: 20130504, end: 20130504

REACTIONS (5)
  - Presyncope [Recovered/Resolved]
  - Visual impairment [Recovered/Resolved]
  - Heart rate increased [Recovered/Resolved]
  - Off label use [Unknown]
  - Dizziness [Recovered/Resolved]
